FAERS Safety Report 15287749 (Version 1)
Quarter: 2018Q3

REPORT INFORMATION
  Report Type: Spontaneous
  Country: US (occurrence: US)
  Receive Date: 20180817
  Receipt Date: 20180817
  Transmission Date: 20181010
  Serious: Yes (Death, Hospitalization, Other)
  Sender: FDA-Public Use
  Company Number: US-BION-007360

PATIENT
  Age: 34 Year
  Sex: Male

DRUGS (3)
  1. LOPERAMIDE HYDROCHLORIDE. [Suspect]
     Active Substance: LOPERAMIDE HYDROCHLORIDE
     Dosage: 25 TO 30 PILLS OF 2 MG AT A TIME, WHICH ESCALATED UP TO 200 PILLS
  2. ETIZOLAM [Suspect]
     Active Substance: ETIZOLAM
  3. GABAPENTIN. [Concomitant]
     Active Substance: GABAPENTIN

REACTIONS (6)
  - Pulmonary congestion [Fatal]
  - Withdrawal syndrome [Unknown]
  - Accidental overdose [Unknown]
  - Atrioventricular block first degree [Unknown]
  - Palpitations [Unknown]
  - Drug abuse [Unknown]
